FAERS Safety Report 9062703 (Version 1)
Quarter: 2013Q1

REPORT INFORMATION
  Report Type: Report from Study
  Country: US (occurrence: US)
  Receive Date: 20130213
  Receipt Date: 20130213
  Transmission Date: 20140127
  Serious: Yes (Hospitalization)
  Sender: FDA-Public Use
  Company Number: US-ABBOTT-13P-163-1047152-00

PATIENT
  Age: 40 None
  Sex: Female
  Weight: 108.05 kg

DRUGS (11)
  1. HUMIRA [Suspect]
     Indication: CROHN^S DISEASE
     Dates: start: 2010, end: 201301
  2. HUMIRA [Suspect]
     Indication: RHEUMATOID ARTHRITIS
     Dates: start: 201301
  3. LISINOPRIL [Concomitant]
     Indication: HYPERTENSION
  4. LYRICA [Concomitant]
     Indication: FIBROMYALGIA
  5. METHOCARBAN [Concomitant]
     Indication: MUSCLE SPASMS
  6. TOPRAMAX [Concomitant]
     Indication: MIGRAINE
  7. TRICOR [Concomitant]
     Indication: HYPERLIPIDAEMIA
  8. ZANTAC [Concomitant]
     Indication: GASTROOESOPHAGEAL REFLUX DISEASE
  9. NEXIUM [Concomitant]
     Indication: GASTROOESOPHAGEAL REFLUX DISEASE
  10. VICODIN [Concomitant]
     Indication: PAIN
  11. ZYRTEC [Concomitant]
     Indication: HYPERSENSITIVITY

REACTIONS (12)
  - Vaginal haemorrhage [Recovered/Resolved]
  - Gastrointestinal infection [Not Recovered/Not Resolved]
  - Bronchitis [Not Recovered/Not Resolved]
  - Incorrect dose administered [Not Recovered/Not Resolved]
  - Gait disturbance [Not Recovered/Not Resolved]
  - Diarrhoea [Not Recovered/Not Resolved]
  - Weight decreased [Not Recovered/Not Resolved]
  - Vomiting [Not Recovered/Not Resolved]
  - Pain [Not Recovered/Not Resolved]
  - Local swelling [Not Recovered/Not Resolved]
  - Local swelling [Not Recovered/Not Resolved]
  - Cough [Not Recovered/Not Resolved]
